FAERS Safety Report 6313602-2 (Version None)
Quarter: 2009Q3

REPORT INFORMATION
  Report Type: 
  Country: None (occurrence: None)
  Receive Date: 20090814
  Receipt Date: 20090814
  Transmission Date: 20100115
  Serious: Yes (Hospitalization)
  Sender: FDA-Public Use
  Company Number: None

PATIENT
  Age: 66 Year
  Sex: Male
  Weight: 86 kg

DRUGS (4)
  1. WARFARIN SODIUM [Suspect]
     Indication: DEEP VEIN THROMBOSIS
     Dosage: WARFARIN 5MG 5 DAYS PER WEEK ORAL, LONG TERM USAGE
     Route: 048
  2. WARFARIN SODIUM [Suspect]
     Indication: PULMONARY EMBOLISM
     Dosage: WARFARIN 5MG 5 DAYS PER WEEK ORAL, LONG TERM USAGE
     Route: 048
  3. WARFARIN SODIUM [Suspect]
     Indication: DEEP VEIN THROMBOSIS
     Dosage: WARFARIN 2.5MG TUES. AND SAT. ORAL, LONG TERM USAGE
     Route: 048
  4. WARFARIN SODIUM [Suspect]
     Indication: PULMONARY EMBOLISM
     Dosage: WARFARIN 2.5MG TUES. AND SAT. ORAL, LONG TERM USAGE
     Route: 048

REACTIONS (5)
  - FALL [None]
  - INTERNATIONAL NORMALISED RATIO INCREASED [None]
  - INTRACRANIAL PRESSURE INCREASED [None]
  - RESPIRATORY FAILURE [None]
  - SUBDURAL HAEMATOMA [None]
